FAERS Safety Report 24131290 (Version 1)
Quarter: 2024Q3

REPORT INFORMATION
  Report Type: Spontaneous
  Country: FR (occurrence: FR)
  Receive Date: 20240724
  Receipt Date: 20240724
  Transmission Date: 20241016
  Serious: Yes (Hospitalization)
  Sender: TEVA
  Company Number: None

PATIENT
  Age: 42 Year
  Sex: Female
  Weight: 62 kg

DRUGS (5)
  1. MIRTAZAPINE [Suspect]
     Active Substance: MIRTAZAPINE
     Indication: Intentional overdose
     Dosage: TIME INTERVAL: TOTAL: 15 MG X 4 TABS
     Route: 048
     Dates: start: 20240610, end: 20240610
  2. HYDROCHLOROTHIAZIDE [Suspect]
     Active Substance: HYDROCHLOROTHIAZIDE
     Indication: Intentional overdose
     Dosage: TIME INTERVAL: TOTAL: 2.5 MG X 30 TABS
     Route: 048
     Dates: start: 20240610, end: 20240610
  3. ENALAPRIL [Suspect]
     Active Substance: ENALAPRIL
     Indication: Intentional overdose
     Dosage: TIME INTERVAL: TOTAL: 20 MG X 30 TABS, ENALAPRIL (MALEATE D^)
     Route: 048
     Dates: start: 20240610, end: 20240610
  4. PROPRANOLOL [Suspect]
     Active Substance: PROPRANOLOL HYDROCHLORIDE
     Indication: Intentional overdose
     Dosage: TIME INTERVAL: TOTAL: 40 MG X 16 TABS
     Route: 048
     Dates: start: 20240610, end: 20240610
  5. PAROXETINE [Suspect]
     Active Substance: PAROXETINE
     Indication: Intentional overdose
     Dosage: TIME INTERVAL: TOTAL: 20 MG X 35 TABS, PAROXETINE BASE
     Route: 048
     Dates: start: 20240610, end: 20240610

REACTIONS (3)
  - Electrocardiogram QT prolonged [Recovered/Resolved]
  - Acute kidney injury [Recovered/Resolved]
  - Poisoning deliberate [Recovered/Resolved]

NARRATIVE: CASE EVENT DATE: 20240610
